FAERS Safety Report 16795751 (Version 1)
Quarter: 2019Q3

REPORT INFORMATION
  Report Type: Spontaneous
  Country: GR (occurrence: GR)
  Receive Date: 20190911
  Receipt Date: 20190911
  Transmission Date: 20191005
  Serious: Yes (Hospitalization, Other)
  Sender: FDA-Public Use
  Company Number: GR-IBSA PHARMA-TIR-2019-0727

PATIENT
  Age: 78 Year
  Sex: Female

DRUGS (2)
  1. ANTIDIABETIC TABLET [Concomitant]
     Indication: TYPE 3 DIABETES MELLITUS
  2. LEVOTHYROXINE. [Suspect]
     Active Substance: LEVOTHYROXINE
     Indication: HYPOTHYROIDISM

REACTIONS (6)
  - Back pain [Unknown]
  - Dysstasia [Unknown]
  - Immobilisation prolonged [Unknown]
  - Asthenia [Unknown]
  - Hip fracture [Unknown]
  - Fall [Unknown]
